FAERS Safety Report 24060486 (Version 1)
Quarter: 2024Q3

REPORT INFORMATION
  Report Type: Report from Study
  Country: US (occurrence: US)
  Receive Date: 20240708
  Receipt Date: 20240708
  Transmission Date: 20241017
  Serious: Yes (Other)
  Sender: ABBVIE
  Company Number: US-ABBVIE-5830627

PATIENT
  Sex: Female

DRUGS (19)
  1. SKYRIZI [Suspect]
     Active Substance: RISANKIZUMAB-RZAA
     Indication: Product used for unknown indication
     Dosage: FORM STRENGTH: 150 MILLIGRAM
     Route: 058
     Dates: start: 20231122
  2. METOPROLOL SUCCINATE [Concomitant]
     Active Substance: METOPROLOL SUCCINATE
     Indication: Product used for unknown indication
  3. ONDANSETRON HYDROCHLORIDE [Concomitant]
     Active Substance: ONDANSETRON HYDROCHLORIDE
     Indication: Product used for unknown indication
     Dosage: 4 MG TABLET
  4. NITROGLYCERIN [Concomitant]
     Active Substance: NITROGLYCERIN
     Indication: Product used for unknown indication
     Dosage: 0.3 MG TAB SUBL
  5. VITAMIN B12 [Concomitant]
     Active Substance: CYANOCOBALAMIN
     Indication: Product used for unknown indication
     Dosage: 2500 MCG TABLET
  6. SPIRONOLACTONE [Concomitant]
     Active Substance: SPIRONOLACTONE
     Indication: Product used for unknown indication
     Dosage: 100 MG TABLET
  7. ATORVASTATIN CALCIUM [Concomitant]
     Active Substance: ATORVASTATIN CALCIUM
     Indication: Product used for unknown indication
     Dosage: 80 MG TABLET
  8. CLINDAMYCIN HYDROCHLORIDE [Concomitant]
     Active Substance: CLINDAMYCIN HYDROCHLORIDE
     Indication: Product used for unknown indication
  9. ZETIA [Concomitant]
     Active Substance: EZETIMIBE
     Indication: Product used for unknown indication
  10. NYSTATIN [Concomitant]
     Active Substance: NYSTATIN
     Indication: Product used for unknown indication
     Dosage: 100000/ML ORAL SUSP
  11. TRAMADOL HCL [Concomitant]
     Active Substance: TRAMADOL HYDROCHLORIDE
     Indication: Product used for unknown indication
     Dosage: 100 MG TABLET
  12. OMEPRAZOLE [Concomitant]
     Active Substance: OMEPRAZOLE
     Indication: Product used for unknown indication
     Dosage: 20 MG CAPSULE DR
  13. CLOPIDOGREL [Concomitant]
     Active Substance: CLOPIDOGREL BISULFATE
     Indication: Product used for unknown indication
  14. JARDIANCE [Concomitant]
     Active Substance: EMPAGLIFLOZIN
     Indication: Product used for unknown indication
  15. DALIRESP [Concomitant]
     Active Substance: ROFLUMILAST
     Indication: Product used for unknown indication
     Dosage: 500 MCG TABLET
  16. RANOLAZINE [Concomitant]
     Active Substance: RANOLAZINE
     Indication: Product used for unknown indication
     Dosage: 500 MG TAB ER 12H?ER
  17. ALBUTEROL SULFATE [Concomitant]
     Active Substance: ALBUTEROL SULFATE
     Indication: Product used for unknown indication
  18. FLUTICASONE FUROATE\SALMETEROL XINAFOATE [Concomitant]
     Active Substance: FLUTICASONE FUROATE\SALMETEROL XINAFOATE
     Indication: Product used for unknown indication
     Dosage: 18 MCG CAP W/DEV?SPIRIVA HANDIHALER
  19. POTASSIUM CHLORIDE [Concomitant]
     Active Substance: POTASSIUM CHLORIDE
     Indication: Product used for unknown indication

REACTIONS (2)
  - Implantable defibrillator insertion [Unknown]
  - Incision site impaired healing [Unknown]

NARRATIVE: CASE EVENT DATE: 20240101
